FAERS Safety Report 8921133 (Version 1)
Quarter: 2012Q4

REPORT INFORMATION
  Report Type: 
  Country: SE (occurrence: SE)
  Receive Date: 20121121
  Receipt Date: 20121121
  Transmission Date: 20130627
  Serious: Yes (Hospitalization)
  Sender: FDA-Public Use
  Company Number: SE-PFIZER INC-2012288357

PATIENT
  Age: 83 Year
  Sex: Female
  Weight: 69 kg

DRUGS (8)
  1. GENOTROPIN [Suspect]
     Indication: GROWTH HORMONE DEFICIENCY
     Dosage: 0.4 mg, 1x/day, 7 injections/week
     Route: 058
     Dates: start: 19970403
  2. LEVOTHYROXINE [Concomitant]
     Indication: TSH DECREASED
     Dosage: UNK
     Dates: start: 19691001
  3. LEVOTHYROXINE [Concomitant]
     Indication: PRIMARY HYPOTHYROIDISM
  4. CORTISONE ACETATE [Concomitant]
     Indication: ACTH DECREASED
     Dosage: UNK
     Dates: start: 19691001
  5. DESOGESTREL/ETHINYLESTRADIOL [Concomitant]
     Indication: LUTEINIZING HORMONE DEFICIENCY
     Dosage: UNK
     Dates: start: 19971001
  6. DESOGESTREL/ETHINYLESTRADIOL [Concomitant]
     Indication: FOLLICLE-STIMULATING HORMONE DEFICIENCY
  7. DESOGESTREL/ETHINYLESTRADIOL [Concomitant]
     Indication: OVARIAN DISORDER
  8. DESOGESTREL/ETHINYLESTRADIOL [Concomitant]
     Indication: HYPOGONADISM

REACTIONS (1)
  - Urinary tract disorder [Unknown]
